FAERS Safety Report 15379123 (Version 1)
Quarter: 2018Q3

REPORT INFORMATION
  Report Type: Spontaneous
  Country: US (occurrence: US)
  Receive Date: 20180906
  Receipt Date: 20180906
  Transmission Date: 20181010
  Serious: Yes (Life-Threatening, Hospitalization, Disabling, Other)
  Sender: FDA-Public Use
  Company Number: None

PATIENT
  Age: 47 Year
  Sex: Male
  Weight: 150.75 kg

DRUGS (1)
  1. DEFINITY [Suspect]
     Active Substance: PERFLUTREN
     Indication: ECHOCARDIOGRAM
     Dosage: ?          QUANTITY:10 DF DOSAGE FORM;OTHER FREQUENCY:1 TIME;?
     Route: 042

REACTIONS (6)
  - Atrial fibrillation [None]
  - Chest pain [None]
  - Back pain [None]
  - Myocardial infarction [None]
  - Dyspnoea [None]
  - Cardiac disorder [None]

NARRATIVE: CASE EVENT DATE: 20150918
